FAERS Safety Report 16841367 (Version 2)
Quarter: 2019Q3

REPORT INFORMATION
  Report Type: Spontaneous
  Country: GB (occurrence: GB)
  Receive Date: 20190923
  Receipt Date: 20190928
  Transmission Date: 20191005
  Serious: Yes (Other)
  Sender: FDA-Public Use
  Company Number: PHHY2019GB215652

PATIENT
  Age: 60 Year
  Sex: Male
  Weight: 88.9 kg

DRUGS (1)
  1. VOLTAROL [DICLOFENAC DIETHYLAMINE] [Suspect]
     Active Substance: DICLOFENAC DIETHYLAMINE
     Indication: MUSCLE STRAIN
     Dosage: UNK (THREE MODERATE APPLICATIONS OF APPROX 150X50 MM ON KNEE AREA)
     Route: 061
     Dates: start: 20190801, end: 20190803

REACTIONS (5)
  - Erythema [Recovered/Resolved]
  - Application site hypersensitivity [Recovered/Resolved]
  - Rash vesicular [Recovered/Resolved]
  - Pruritus [Recovered/Resolved]
  - Application site rash [Recovered/Resolved]

NARRATIVE: CASE EVENT DATE: 20190803
